FAERS Safety Report 8123906 (Version 21)
Quarter: 2013Q2

REPORT INFORMATION
  Report Type: Spontaneous
  Country: GB (occurrence: GB)
  Receive Date: 20110907
  Receipt Date: 20130408
  Transmission Date: 20140414
  Serious: Yes (Death, Hospitalization, Other)
  Sender: FDA-Public Use
  Company Number: PHFR2011GB05074

PATIENT
  Age: 51 Year
  Sex: Male
  Weight: 83.3 kg

DRUGS (7)
  1. CLOZARIL [Suspect]
     Indication: SCHIZOPHRENIA
     Dosage: 500 MG, QD
     Route: 048
     Dates: start: 20031101
  2. CLOZARIL [Suspect]
     Dosage: 500 MG, QD (200 MG AT MORNING AND 300 MG AT NIGHT)
     Route: 048
     Dates: start: 20110828
  3. CLOZARIL [Suspect]
     Dosage: 200 MG MORNING AND 300 MG NIGHT
  4. TRIHEXYPHENIDYL [Concomitant]
     Indication: SALIVARY HYPERSECRETION
     Dosage: 300 MG, BID
     Route: 048
  5. METFORMIN [Concomitant]
     Indication: DIABETES MELLITUS
     Dosage: 1000 MG, BID
  6. SIMVASTATIN [Concomitant]
     Indication: BLOOD CHOLESTEROL INCREASED
     Dosage: 40 MG, QD
  7. ASPIRIN [Concomitant]
     Indication: PLATELET AGGREGATION
     Dosage: 75 MG, QD

REACTIONS (12)
  - Burkitt^s lymphoma [Fatal]
  - Sepsis [Fatal]
  - Gastrointestinal carcinoma [Recovering/Resolving]
  - Malaise [Unknown]
  - Neutrophil count increased [Recovered/Resolved]
  - Neutropenia [Unknown]
  - Neutrophil count decreased [Unknown]
  - Diarrhoea [Recovering/Resolving]
  - White blood cell count increased [Recovered/Resolved]
  - Platelet count increased [Unknown]
  - White blood cell count decreased [Not Recovered/Not Resolved]
  - Differential white blood cell count abnormal [Recovered/Resolved]
